FAERS Safety Report 7225697-2 (Version None)
Quarter: 2011Q1

REPORT INFORMATION
  Report Type: 
  Country: None (occurrence: None)
  Receive Date: 20110110
  Receipt Date: 20110110
  Transmission Date: 20110831
  Serious: No
  Sender: FDA-Public Use
  Company Number: None

PATIENT
  Age: 74 Year
  Sex: Male
  Weight: 99.7913 kg

DRUGS (1)
  1. SPIRONOLACTONE 25 MG GREEN PHARM [Suspect]
     Indication: BLOOD POTASSIUM DECREASED
     Dosage: 1 TABLET DAILY PO
     Route: 048
     Dates: start: 20100714, end: 20100721

REACTIONS (3)
  - ABASIA [None]
  - DYSSTASIA [None]
  - MUSCULAR DYSTROPHY [None]
